FAERS Safety Report 4336614-7 (Version None)
Quarter: 2004Q2

REPORT INFORMATION
  Report Type: 
  Country: None (occurrence: None)
  Receive Date: 20040407
  Receipt Date: 20040325
  Transmission Date: 20050107
  Serious: Yes (Hospitalization, Other)
  Sender: FDA-Public Use
  Company Number: 2004020487

PATIENT
  Age: 47 Year
  Sex: Male
  Weight: 86 kg

DRUGS (24)
  1. NORVASC [Suspect]
     Indication: ILL-DEFINED DISORDER
     Dosage: 5 MG (DAILY), ORAL
     Route: 048
     Dates: start: 20030715, end: 20031108
  2. QUINAPRIL HCL [Suspect]
     Indication: ILL-DEFINED DISORDER
     Dosage: 10 MG (DAILY), ORAL
     Route: 048
     Dates: start: 20030715, end: 20031108
  3. NAPROXEN [Suspect]
     Indication: ILL-DEFINED DISORDER
     Dosage: 500 MG (PRN), ORAL
     Route: 048
     Dates: start: 20030715
  4. ZOLPIDEM TARTRATE (ZOPIDEM TARTRATE) [Concomitant]
  5. ACETYLSALICYLIC ACID SRT [Concomitant]
  6. CENTRUM (VITAMINS NOS, MINERALS NOS) [Concomitant]
  7. VENLAFAXINE HCL [Concomitant]
  8. TAMSULOSIN HYDROCHLORIDE (TAMSULOSIN HYDROCHLORIDE) [Concomitant]
  9. CLONAZEPAM [Concomitant]
  10. ATORVASTATIN (ATORVASTATIN) [Concomitant]
  11. GEMFIBROZIL [Concomitant]
  12. MOMETASONE FUROATE [Concomitant]
  13. NITROGLYCERIN [Concomitant]
  14. PROMETHAZINE HYDROCHLORIDE TAB [Concomitant]
  15. CLOPIDOGREL BISULFATE [Concomitant]
  16. LANSOPRAZOLE [Concomitant]
  17. PROPRANOLOL HCL [Concomitant]
  18. SALBUTAMOL (SALBUTAMOL) [Concomitant]
  19. FLUOXETINE HCL [Concomitant]
  20. QUETIAPINE FUMARATE (QUETIAPINE FUMARATE) [Concomitant]
  21. BUTORPHANOL TARATRATE [Concomitant]
  22. TIZANIDINE HCL [Concomitant]
  23. ATENOLOL [Concomitant]
  24. BIVALIRUDIN (BIVALIRUDIN) [Concomitant]

REACTIONS (11)
  - ANOREXIA [None]
  - ASTHENIA [None]
  - BRADYCARDIA [None]
  - DEHYDRATION [None]
  - DIZZINESS [None]
  - FALL [None]
  - HYPOTENSION [None]
  - NAUSEA [None]
  - RENAL FAILURE ACUTE [None]
  - RIB FRACTURE [None]
  - VOMITING [None]
